FAERS Safety Report 4666506-5 (Version None)
Quarter: 2005Q2

REPORT INFORMATION
  Report Type: 
  Country: None (occurrence: None)
  Receive Date: 20050519
  Receipt Date: 20050509
  Transmission Date: 20051028
  Serious: Yes (Life-Threatening, Other)
  Sender: FDA-Public Use
  Company Number: IT-ABBOTT-05P-083-0300205-00

PATIENT
  Age: 62 Year
  Sex: Female

DRUGS (9)
  1. ECTIVA [Suspect]
     Indication: OBESITY
     Route: 048
     Dates: start: 20041205, end: 20050205
  2. TEOBROMINE [Suspect]
     Indication: OBESITY
     Route: 048
     Dates: start: 20041205, end: 20050205
  3. CHLORAZEPATE [Concomitant]
     Indication: OBESITY
     Route: 048
     Dates: start: 20041204, end: 20050104
  4. POTASSIUM CHLORIDE [Concomitant]
     Indication: OBESITY
     Route: 048
     Dates: start: 20041205, end: 20050105
  5. PANCREATINE [Concomitant]
     Indication: OBESITY
     Route: 048
     Dates: start: 20041205, end: 20050105
  6. DEHYDROCHOLIC ACID [Concomitant]
     Indication: OBESITY
     Route: 048
     Dates: start: 20041205, end: 20050105
  7. HYDROCHLOROTHIAZIDE [Concomitant]
     Indication: OBESITY
     Route: 048
     Dates: start: 20041205, end: 20050105
  8. ASCORBIC ACID [Concomitant]
     Indication: OBESITY
     Route: 048
     Dates: start: 20041205, end: 20050105
  9. DEXTRAN [Concomitant]
     Indication: OBESITY
     Route: 048
     Dates: start: 20041205, end: 20050105

REACTIONS (3)
  - CARDIO-RESPIRATORY ARREST [None]
  - ELECTROCARDIOGRAM QT PROLONGED [None]
  - VENTRICULAR FIBRILLATION [None]
